FAERS Safety Report 10716272 (Version 1)
Quarter: 2015Q1

REPORT INFORMATION
  Report Type: Report from Study
  Country: DE (occurrence: DE)
  Receive Date: 20150116
  Receipt Date: 20150116
  Transmission Date: 20150721
  Serious: Yes (Hospitalization)
  Sender: FDA-Public Use
  Company Number: DE-ROCHE-1125248

PATIENT
  Age: 53 Year
  Sex: Female
  Weight: 100 kg

DRUGS (12)
  1. VOLTAREN RESINAT [Concomitant]
     Active Substance: DICLOFENAC
     Route: 065
  2. BEVACIZUMAB [Suspect]
     Active Substance: BEVACIZUMAB
     Indication: BREAST CANCER METASTATIC
     Dosage: INTERRUPTED DUE TO EVENT AND RESTARTED ON 03/JUL/2012 AT 1000 MG.
     Route: 042
     Dates: start: 20120210
  3. OMEPRAZOL [Concomitant]
     Active Substance: OMEPRAZOLE
     Route: 065
  4. MORONAL [Concomitant]
     Active Substance: NYSTATIN
     Indication: ORAL CANDIDIASIS
     Route: 065
     Dates: start: 20120309, end: 20120703
  5. TAXOL [Concomitant]
     Active Substance: PACLITAXEL
     Indication: BREAST CANCER METASTATIC
     Route: 042
  6. RAMILICH COMP [Concomitant]
     Dosage: 5/25 MG
     Route: 065
  7. METFORMIN [Concomitant]
     Active Substance: METFORMIN HYDROCHLORIDE
     Route: 065
  8. ACTRAPID [Concomitant]
     Active Substance: INSULIN HUMAN
  9. ZALDIAR [Concomitant]
     Active Substance: ACETAMINOPHEN\TRAMADOL HYDROCHLORIDE
     Dosage: 37.5/325 MG
     Route: 065
  10. RAMIPRIL. [Concomitant]
     Active Substance: RAMIPRIL
     Route: 065
     Dates: start: 201003
  11. TAXOL [Concomitant]
     Active Substance: PACLITAXEL
     Dosage: 72-77 MG/M2
     Route: 065
     Dates: start: 20120210, end: 20121002
  12. PROTOPHANE [Concomitant]
     Route: 065

REACTIONS (1)
  - Supraventricular tachycardia [Recovered/Resolved]

NARRATIVE: CASE EVENT DATE: 20120703
